FAERS Safety Report 15363038 (Version 2)
Quarter: 2018Q3

REPORT INFORMATION
  Report Type: Report from Study
  Country: AR (occurrence: AR)
  Receive Date: 20180907
  Receipt Date: 20180919
  Transmission Date: 20181010
  Serious: Yes (Hospitalization)
  Sender: FDA-Public Use
  Company Number: PHHY2018AR091060

PATIENT
  Age: 58 Year
  Sex: Female

DRUGS (2)
  1. GILENYA [Suspect]
     Active Substance: FINGOLIMOD HYDROCHLORIDE
     Indication: MULTIPLE SCLEROSIS
     Dosage: 0.5 MG, QD
     Route: 065
     Dates: start: 2013
  2. ACALIX [Concomitant]
     Indication: PRODUCT USED FOR UNKNOWN INDICATION
     Dosage: 60 OT, QD
     Route: 065

REACTIONS (9)
  - Agitation [Recovering/Resolving]
  - Cardiac discomfort [Not Recovered/Not Resolved]
  - Memory impairment [Unknown]
  - Malaise [Recovering/Resolving]
  - Back pain [Not Recovered/Not Resolved]
  - Coronary artery disease [Unknown]
  - Chest pain [Unknown]
  - Pain in extremity [Not Recovered/Not Resolved]
  - Emphysema [Unknown]

NARRATIVE: CASE EVENT DATE: 20180825
